FAERS Safety Report 6068194-2 (Version None)
Quarter: 2009Q1

REPORT INFORMATION
  Report Type: 
  Country: None (occurrence: None)
  Receive Date: 20090203
  Receipt Date: 20090119
  Transmission Date: 20090719
  Serious: Yes (Other)
  Sender: FDA-Public Use
  Company Number: 2009S1000848

PATIENT
  Age: 77 Year
  Sex: Female

DRUGS (1)
  1. SODIUM PHOSPHATES [Suspect]
     Indication: COLONOSCOPY
     Dosage: PO
     Route: 048

REACTIONS (1)
  - NEPHROPATHY [None]
